FAERS Safety Report 16891517 (Version 1)
Quarter: 2019Q4

REPORT INFORMATION
  Report Type: Spontaneous
  Country: US (occurrence: US)
  Receive Date: 20191007
  Receipt Date: 20191007
  Transmission Date: 20200122
  Serious: No
  Sender: FDA-Public Use
  Company Number: US-AVEDRO-AVE-2019-0391-AE

PATIENT
  Age: 35 Year
  Sex: Male

DRUGS (2)
  1. AVEDRO CROSS-LINKING PRODUCT(S), UNSPECIFIED [Suspect]
     Active Substance: RIBOFLAVIN 5^-PHOSPHATE SODIUM
     Indication: KERATOCONUS
     Route: 047
     Dates: start: 20190718, end: 20190718
  2. AVEDRO CROSS-LINKING PRODUCT(S), UNSPECIFIED [Suspect]
     Active Substance: RIBOFLAVIN 5^-PHOSPHATE SODIUM
     Indication: KERATOCONUS
     Route: 047
     Dates: start: 20190614, end: 20190614

REACTIONS (5)
  - Photophobia [Recovering/Resolving]
  - Eye pain [Recovering/Resolving]
  - Eye pain [Recovering/Resolving]
  - Visual impairment [Recovering/Resolving]
  - Ocular discomfort [Recovering/Resolving]

NARRATIVE: CASE EVENT DATE: 2019
